FAERS Safety Report 8892861 (Version 1)
Quarter: 2012Q4

REPORT INFORMATION
  Report Type: Spontaneous
  Country: US (occurrence: None)
  Receive Date: 20121031
  Receipt Date: 20121031
  Transmission Date: 20130627
  Serious: Yes (Life-Threatening)
  Sender: FDA-Public Use
  Company Number: ABR_00675_2012

PATIENT
  Sex: Female

DRUGS (2)
  1. ERYTHROMYCIN [Suspect]
     Indication: ASTHMA
     Dosage: (DF)
  2. SULFA [Suspect]
     Dosage: (DF)
     Dates: start: 1985, end: 1985

REACTIONS (1)
  - Cardiac arrest [None]
